FAERS Safety Report 5212030-0 (Version None)
Quarter: 2007Q1

REPORT INFORMATION
  Report Type: 
  Country: None (occurrence: None)
  Receive Date: 20070117
  Receipt Date: 20070117
  Transmission Date: 20070707
  Serious: Yes (Death)
  Sender: FDA-Public Use
  Company Number: None

PATIENT
  Age: 50 Year
  Sex: Male
  Weight: 52.6 kg

DRUGS (5)
  1. STAVUDINE [Suspect]
     Indication: HIV INFECTION
     Dosage: 40 MG BID PO
     Route: 048
     Dates: start: 20060717, end: 20061216
  2. EFAVIRENZ [Suspect]
     Indication: HIV INFECTION
     Dosage: 600 MG QHS PO
     Route: 048
     Dates: start: 20060727, end: 20061216
  3. LAMIVUDINE [Suspect]
     Indication: HIV INFECTION
     Dosage: 150 MG BID PO
     Route: 048
     Dates: start: 20060717, end: 20061216
  4. VITAMIN B6 [Concomitant]
  5. TRIMETHOPRIM + SULFAMETHOXAZOLE [Concomitant]

REACTIONS (1)
  - PULMONARY TUBERCULOSIS [None]
